FAERS Safety Report 12133684 (Version 3)
Quarter: 2016Q2

REPORT INFORMATION
  Report Type: Spontaneous
  Country: US (occurrence: US)
  Receive Date: 20160301
  Receipt Date: 20160407
  Transmission Date: 20160815
  Serious: No
  Sender: FDA-Public Use
  Company Number: US-PFIZER INC-2016066556

PATIENT

DRUGS (1)
  1. DICLOFENAC SODIUM/MISOPROSTOL [Suspect]
     Active Substance: DICLOFENAC SODIUM\MISOPROSTOL
     Dosage: 200 UG MISOPROSTOL / 50 MG DICLOFENAC

REACTIONS (3)
  - Abdominal pain upper [Unknown]
  - Drug effect incomplete [Unknown]
  - Product substitution issue [None]
